FAERS Safety Report 20749277 (Version 6)
Quarter: 2022Q2

REPORT INFORMATION
  Report Type: Report from Study
  Country: TW (occurrence: None)
  Receive Date: 20220426
  Receipt Date: 20220601
  Transmission Date: 20220721
  Serious: Yes (Hospitalization)
  Sender: FDA-Public Use
  Company Number: TW-Eisai Medical Research-EC-2022-111037

PATIENT
  Age: 60 Year
  Sex: Female
  Weight: 81.1 kg

DRUGS (13)
  1. LENVATINIB [Suspect]
     Active Substance: LENVATINIB
     Indication: Hepatocellular carcinoma
     Route: 048
     Dates: start: 20220216, end: 20220309
  2. LENVATINIB [Suspect]
     Active Substance: LENVATINIB
     Dosage: STARTING DOSE 8MG FLUCTUATED DOSAGE
     Route: 048
     Dates: start: 20220324
  3. QUAVONLIMAB [Suspect]
     Active Substance: QUAVONLIMAB
     Indication: Hepatocellular carcinoma
     Dosage: QUAVONLIMAB (MK-1308) 25MG (+) PEMBROLIZUMAB (MK-3475) 400 MG (MK-1308A) 425 MG
     Route: 041
     Dates: start: 20220216, end: 20220216
  4. PEMBROLIZUMAB [Suspect]
     Active Substance: PEMBROLIZUMAB
     Dosage: QUAVONLIMAB (MK-1308) 25MG (+) PEMBROLIZUMAB (MK-3475) 400 MG (MK-1308A) 425 MG
     Route: 041
     Dates: start: 20220414
  5. AMLODIPINE BESYLATE [Concomitant]
     Active Substance: AMLODIPINE BESYLATE
     Dates: start: 20220224, end: 20220302
  6. CEPHALEXIN MONOHYDRATE [Concomitant]
     Active Substance: CEPHALEXIN MONOHYDRATE
     Dates: start: 20220225, end: 20220302
  7. LEVOCETIRIZINE [Concomitant]
     Active Substance: LEVOCETIRIZINE
     Dates: start: 20220303, end: 20220309
  8. PROCHLORPERAZINE [Concomitant]
     Active Substance: PROCHLORPERAZINE
     Dates: start: 20220304, end: 20220311
  9. TRIAMCINOLONE ACETONIDE [Concomitant]
     Active Substance: TRIAMCINOLONE ACETONIDE
     Dates: start: 20220304, end: 20220311
  10. THIAMINE TETRAHYDROFURFURYL DISULFIDE [Concomitant]
     Dates: start: 202112
  11. BARACLUDE [Concomitant]
     Active Substance: ENTECAVIR
     Dates: start: 20220210
  12. ACETAMINOPHEN [Concomitant]
     Active Substance: ACETAMINOPHEN
     Dates: start: 20220225, end: 20220311
  13. CELECOXIB [Concomitant]
     Active Substance: CELECOXIB
     Dates: start: 20220303, end: 20220309

REACTIONS (1)
  - Opsoclonus myoclonus [Recovered/Resolved]

NARRATIVE: CASE EVENT DATE: 20220306
